FAERS Safety Report 21328599 (Version 1)
Quarter: 2022Q3

REPORT INFORMATION
  Report Type: Spontaneous
  Country: US (occurrence: US)
  Receive Date: 20220913
  Receipt Date: 20220913
  Transmission Date: 20221027
  Serious: Yes (Other)
  Sender: FDA-Public Use
  Company Number: US-OTSUKA-2022_044517

PATIENT
  Age: 47 Year
  Sex: Female

DRUGS (5)
  1. REXULTI [Suspect]
     Active Substance: BREXPIPRAZOLE
     Indication: Post-traumatic stress disorder
     Dosage: 1 MG
     Route: 065
     Dates: start: 202206
  2. REXULTI [Suspect]
     Active Substance: BREXPIPRAZOLE
     Indication: Depression
  3. PROPRANOLOL [Suspect]
     Active Substance: PROPRANOLOL HYDROCHLORIDE
     Indication: Product used for unknown indication
     Dosage: 60 MG
     Route: 065
  4. CYMBALTA [Suspect]
     Active Substance: DULOXETINE HYDROCHLORIDE
     Indication: Product used for unknown indication
     Dosage: 60 MG
     Route: 065
     Dates: start: 202206
  5. TRAZODONE [Suspect]
     Active Substance: TRAZODONE HYDROCHLORIDE
     Indication: Product used for unknown indication
     Dosage: 50 MG
     Route: 065

REACTIONS (3)
  - Splenic infarction [Unknown]
  - Product use issue [Unknown]
  - Product use in unapproved indication [Unknown]

NARRATIVE: CASE EVENT DATE: 20220601
